FAERS Safety Report 6290542-9 (Version None)
Quarter: 2009Q3

REPORT INFORMATION
  Report Type: 
  Country: None (occurrence: None)
  Receive Date: 20090730
  Receipt Date: 20090720
  Transmission Date: 20100115
  Serious: Yes (Other)
  Sender: FDA-Public Use
  Company Number: US-ROCHE-543193

PATIENT
  Age: 60 Year
  Sex: Female

DRUGS (1)
  1. BONIVA [Suspect]
     Indication: OSTEOPENIA
     Route: 048
     Dates: start: 20080101

REACTIONS (6)
  - DIARRHOEA [None]
  - FOOT FRACTURE [None]
  - MYALGIA [None]
  - NAUSEA [None]
  - STRESS FRACTURE [None]
  - VOMITING [None]
